FAERS Safety Report 10220604 (Version 1)
Quarter: 2014Q2

REPORT INFORMATION
  Report Type: Spontaneous
  Country: PT (occurrence: PT)
  Receive Date: 20140606
  Receipt Date: 20140606
  Transmission Date: 20141212
  Serious: Yes (Hospitalization)
  Sender: FDA-Public Use
  Company Number: PT-TEVA-485684ISR

PATIENT
  Sex: Male

DRUGS (13)
  1. TICLOPIDINE [Suspect]
     Route: 048
  2. CLOPIDOGREL [Suspect]
     Dosage: 75 MILLIGRAM DAILY;
     Route: 048
  3. RAMIPRIL [Concomitant]
  4. RAMIPRIL [Concomitant]
  5. RAMIPRIL [Concomitant]
  6. RAMIPRIL [Concomitant]
  7. RAMIPRIL [Concomitant]
  8. RAMIPRIL [Concomitant]
  9. CARVEDILOL [Concomitant]
  10. NITRATES [Concomitant]
  11. INDAPAMIDE [Concomitant]
  12. ACETYLSALICYLIC ACID [Concomitant]
  13. SIMVASTATIN [Concomitant]

REACTIONS (7)
  - Lip swelling [Recovered/Resolved]
  - Peripheral swelling [Recovered/Resolved]
  - Peripheral swelling [Recovered/Resolved]
  - Rash erythematous [Recovered/Resolved]
  - Skin lesion [Recovered/Resolved]
  - Arthralgia [Recovered/Resolved]
  - Gastrointestinal disorder [Recovered/Resolved]
